FAERS Safety Report 6381563-6 (Version None)
Quarter: 2009Q3

REPORT INFORMATION
  Report Type: 
  Country: None (occurrence: None)
  Receive Date: 20090925
  Receipt Date: 20090227
  Transmission Date: 20100115
  Serious: Yes (Hospitalization)
  Sender: FDA-Public Use
  Company Number: 2009SP024537

PATIENT
  Age: 55 Year
  Sex: Male

DRUGS (18)
  1. DEXAMETHASONE TAB [Suspect]
     Indication: PROSTATE CANCER
     Dates: start: 20090220, end: 20090227
  2. PREDNISONE TAB [Suspect]
     Indication: PROSTATE CANCER
     Dates: start: 20090220, end: 20090227
  3. DOCETAXEL [Suspect]
     Indication: PROSTATE CANCER
     Dosage: 140 MG; IV
     Route: 042
  4. BLINDED DEXAMETHASONE (S -P) [Suspect]
     Indication: PROSTATE CANCER
     Dosage: 100 MG;QD;PO
     Route: 048
     Dates: start: 20090220, end: 20090227
  5. SERETIDE /01420917 [Concomitant]
  6. INTAL [Concomitant]
  7. COVERSYL  /00790701/ [Concomitant]
  8. TRAMAL	/00599201/ [Concomitant]
  9. MOVICOL  /01749801/ [Concomitant]
  10. PANADOL /00020001/ [Concomitant]
  11. NAVOBAN [Concomitant]
  12. MAXOLON [Concomitant]
  13. ZOFRAN	/00955301/ [Concomitant]
  14. KYTRIL  /01178102/ [Concomitant]
  15. STEMETIL  /00013301/ [Concomitant]
  16. OXYCONTIN [Concomitant]
  17. IMODIUM 	/00384302/ [Concomitant]
  18. ELIGARD [Concomitant]

REACTIONS (4)
  - DIARRHOEA [None]
  - HYPOPHAGIA [None]
  - INCONTINENCE [None]
  - NAUSEA [None]
